FAERS Safety Report 7122701-7 (Version None)
Quarter: 2010Q4

REPORT INFORMATION
  Report Type: 
  Country: None (occurrence: None)
  Receive Date: 20101103
  Receipt Date: 20101018
  Transmission Date: 20110411
  Serious: No
  Sender: FDA-Public Use
  Company Number: 2010SP057573

PATIENT
  Age: 11 Year
  Sex: Male

DRUGS (45)
  1. ROCURONIUM BROMIDE [Suspect]
     Indication: PRODUCT USED FOR UNKNOWN INDICATION
     Dosage: 50 MG; ; IV
     Route: 042
     Dates: start: 20100617, end: 20100706
  2. DEXAMETHASONE SODIUM PHOSPHATE (DEXAMETHASONE SODIUM PHOSPHATE /000160 [Suspect]
     Indication: PRODUCT USED FOR UNKNOWN INDICATION
     Dosage: 2 MG; ; INDRP
     Route: 041
     Dates: start: 20100617, end: 20100622
  3. GASTER (FAMOTIDINE) [Suspect]
     Indication: PRODUCT USED FOR UNKNOWN INDICATION
     Dosage: 7.5 MG; BID; PO
     Route: 048
     Dates: start: 20100626, end: 20100715
  4. CEFAZOLIN [Suspect]
     Indication: PRODUCT USED FOR UNKNOWN INDICATION
     Dosage: 500 MG; BID; INDRP
     Route: 041
     Dates: start: 20100622, end: 20100624
  5. GASTER (FAMOTIDINE) [Suspect]
     Indication: PRODUCT USED FOR UNKNOWN INDICATION
     Dosage: 8 MG; BID; INDRP
     Route: 041
     Dates: start: 20100617, end: 20100626
  6. DORMICUM (MIDAZOLAM /00634101/) [Suspect]
     Indication: PRODUCT USED FOR UNKNOWN INDICATION
     Dosage: 10 MG; ; INDRP
     Route: 041
     Dates: start: 20100617, end: 20100709
  7. PHENOBAL (PHENOBARBITAL) [Suspect]
     Indication: PRODUCT USED FOR UNKNOWN INDICATION
     Dosage: 50 MG; BID; PO
     Route: 048
     Dates: start: 20100622, end: 20100709
  8. DIAZEPAM [Suspect]
     Indication: PRODUCT USED FOR UNKNOWN INDICATION
     Dosage: 5 MG; ; PO
     Route: 048
     Dates: start: 20100622, end: 20100701
  9. DIAZEPAM [Suspect]
     Indication: PRODUCT USED FOR UNKNOWN INDICATION
     Dosage: 4 ML; ; PO
     Route: 048
     Dates: start: 20100702, end: 20100722
  10. VICCILLIN (AMPICILLIN) [Suspect]
     Indication: PRODUCT USED FOR UNKNOWN INDICATION
     Dosage: 375 MG; QID; INDRP
     Route: 041
     Dates: start: 20100715, end: 20100716
  11. TAKEPRON (LANSOPRAZOLE) [Suspect]
     Indication: PRODUCT USED FOR UNKNOWN INDICATION
     Dosage: 7.5 MG; BID; PO
     Route: 048
     Dates: start: 20100628, end: 20100728
  12. ROCEPHIN [Suspect]
     Indication: INFECTION
     Dosage: 2000 MG; ; INDRP
     Route: 041
     Dates: start: 20100630, end: 20100707
  13. BIOFERMIN R (STREPTOCOCCUS FAECALIS) [Suspect]
     Indication: PRODUCT USED FOR UNKNOWN INDICATION
     Dosage: 1 GM; ; PO
     Route: 048
     Dates: start: 20100711, end: 20100718
  14. RISPERDAL [Suspect]
     Indication: PRODUCT USED FOR UNKNOWN INDICATION
     Dosage: 0.3 ML; ; PO
     Route: 048
     Dates: start: 20100702, end: 20100714
  15. CALONAL (PARACETAMOL /00020001/) [Suspect]
     Indication: PYREXIA
     Dosage: 300 MG; ; PO
     Route: 048
     Dates: start: 20100627, end: 20100716
  16. MIDAZOLAM (OTHER MFR) (MIDAZOLAM /00634101/) [Suspect]
     Indication: PRODUCT USED FOR UNKNOWN INDICATION
     Dosage: 10 MG; ; INDRP
     Route: 041
     Dates: start: 20100621, end: 20100621
  17. CLINDAMYCIN PHOSPHATE [Suspect]
     Indication: PRODUCT USED FOR UNKNOWN INDICATION
     Dosage: 100 MG; TID; INDRP
     Route: 041
     Dates: start: 20100708, end: 20100710
  18. PIPERACILLIN SODIUM [Suspect]
     Indication: PRODUCT USED FOR UNKNOWN INDICATION
     Dosage: 375 MG; QID; INDRP
     Route: 041
     Dates: start: 20100715, end: 20100716
  19. BIOFERMIN (BIOFERMIN) [Suspect]
     Indication: PRODUCT USED FOR UNKNOWN INDICATION
     Dosage: 1 GM; ; PO
     Route: 048
     Dates: start: 20100711, end: 20100718
  20. MORPHINE HYDROCHLORIDE (MORPHINE HYDROCHLORIDE) [Suspect]
     Indication: PRODUCT USED FOR UNKNOWN INDICATION
     Dosage: 2 MG/KG; ; INDRP
     Route: 041
     Dates: start: 20100621, end: 20100709
  21. LASIX [Suspect]
     Indication: PRODUCT USED FOR UNKNOWN INDICATION
     Dosage: 2.5 MG; QID; PO
     Route: 048
     Dates: start: 20100626, end: 20100706
  22. ALDACTONE [Suspect]
     Indication: PRODUCT USED FOR UNKNOWN INDICATION
     Dosage: 2.5 MG; QID; PO
     Route: 048
     Dates: start: 20100626, end: 20100706
  23. BIOLACTIS (LACTOBACILLUS CASEI) [Suspect]
     Indication: PRODUCT USED FOR UNKNOWN INDICATION
     Dosage: 500 MG; ; PO
     Route: 048
     Dates: start: 20100702, end: 20100709
  24. DEPAS (ETIZOLAM) [Suspect]
     Indication: PRODUCT USED FOR UNKNOWN INDICATION
     Dosage: 1 DF; ; PO
     Route: 048
     Dates: start: 20100701, end: 20100701
  25. TRICLORYL (TRICLOFOS SODIUM) [Suspect]
     Indication: PRODUCT USED FOR UNKNOWN INDICATION
     Dosage: 20 ML; ; PO
     Route: 048
     Dates: start: 20100628, end: 20100705
  26. LAXOBERON (SODIUM PICOSULFATE) [Suspect]
     Indication: PRODUCT USED FOR UNKNOWN INDICATION
     Dosage: 10 ML; ; PO
     Route: 048
     Dates: start: 20100620, end: 20100620
  27. OMEPRAZOLE [Suspect]
     Indication: PRODUCT USED FOR UNKNOWN INDICATION
     Dosage: 7.5 MG; BID; INDRP
     Route: 041
     Dates: start: 20100716, end: 20100721
  28. HEPARIN NOVO-NORDISK (HEPARIN SODUIM /00027704/) [Suspect]
     Indication: PRODUCT USED FOR UNKNOWN INDICATION
     Dosage: 5 IU/KG; ; INDRP
     Route: 041
     Dates: start: 20100808, end: 20100812
  29. HEPARIN SODIUM [Suspect]
     Indication: PRODUCT USED FOR UNKNOWN INDICATION
     Dosage: 2 DF; ; INDRP
     Route: 041
     Dates: start: 20100617
  30. GLYCEOL (GLYCEOL /00744501/) [Suspect]
     Indication: PRODUCT USED FOR UNKNOWN INDICATION
     Dosage: 200 ML; ; INDRP
     Route: 041
     Dates: start: 20100617, end: 20100618
  31. ATROPINE SULFATE [Suspect]
     Indication: PRODUCT USED FOR UNKNOWN INDICATION
     Dosage: 0.5 MG; ; INDRP
     Route: 041
     Dates: start: 20100617, end: 20100622
  32. EPINEPHRINE [Suspect]
     Indication: PRODUCT USED FOR UNKNOWN INDICATION
     Dosage: 10 MG; ; INDRP
     Route: 041
     Dates: start: 20100621, end: 20100621
  33. CALCICOL (CALCIUM GLUCONATE) [Suspect]
     Indication: PRODUCT USED FOR UNKNOWN INDICATION
     Dosage: 10 ML; ; INDRP
     Route: 041
     Dates: start: 20100621, end: 20100621
  34. FENTANYL-100 [Suspect]
     Indication: PRODUCT USED FOR UNKNOWN INDICATION
     Dosage: ; INDRP
     Route: 041
     Dates: start: 20100621, end: 20100708
  35. ULTIVA [Suspect]
     Indication: PRODUCT USED FOR UNKNOWN INDICATION
     Dosage: ; INDRP
     Route: 041
     Dates: start: 20100621, end: 20100708
  36. NICARPINE (NICARDIPINE HYDROCHLORIDE) [Suspect]
     Indication: PRODUCT USED FOR UNKNOWN INDICATION
     Dosage: ; INDRP
     Route: 041
     Dates: start: 20100622, end: 20100624
  37. PRECEDEX [Suspect]
     Indication: PRODUCT USED FOR UNKNOWN INDICATION
     Dosage: ; INDRP
     Route: 042
     Dates: start: 20100704, end: 20100705
  38. XYLOCAINE [Suspect]
     Indication: PRODUCT USED FOR UNKNOWN INDICATION
     Dosage: 10 ML; ; INDRP
     Route: 041
     Dates: start: 20100621, end: 20100709
  39. PANTOL (DEXPANTHENOL) [Suspect]
     Indication: PRODUCT USED FOR UNKNOWN INDICATION
     Dosage: 25 MG; BID; INDRP
     Route: 041
     Dates: start: 20100604, end: 20100705
  40. ATARAX [Suspect]
     Indication: PRODUCT USED FOR UNKNOWN INDICATION
     Dosage: 25 MG; ; INDRP
     Route: 041
     Dates: start: 20100709, end: 20100709
  41. ANHIBA (PARACETAMOL /00020001/) [Suspect]
     Indication: PRODUCT USED FOR UNKNOWN INDICATION
     Dosage: ; RTL
     Route: 054
     Dates: start: 20100630, end: 20100716
  42. ROPION (FLURBIPROFEN AXETIL) [Suspect]
     Indication: PRODUCT USED FOR UNKNOWN INDICATION
     Dosage: 3.5 ML; ; INDRP
     Route: 041
     Dates: start: 20100709, end: 20100709
  43. TARIVID (OFLOXACIN) [Suspect]
     Indication: PRODUCT USED FOR UNKNOWN INDICATION
     Dosage: ; OPH
     Route: 047
     Dates: start: 20100728, end: 20100729
  44. HYALEIN (HYALURONATE SODIUM) [Suspect]
     Indication: PRODUCT USED FOR UNKNOWN INDICATION
     Dosage: ; OPH
     Route: 047
     Dates: start: 20100723, end: 20100821
  45. GLYCEROL 2.6% [Suspect]
     Indication: CONSTIPATION
     Dosage: ; RTL
     Route: 054
     Dates: start: 20100621

REACTIONS (4)
  - DRUG RASH WITH EOSINOPHILIA AND SYSTEMIC SYMPTOMS [None]
  - LYMPHOCYTE STIMULATION TEST POSITIVE [None]
  - PYREXIA [None]
  - STREPTOCOCCAL INFECTION [None]
